FAERS Safety Report 7754290-8 (Version None)
Quarter: 2011Q3

REPORT INFORMATION
  Report Type: 
  Country: None (occurrence: None)
  Receive Date: 20110915
  Receipt Date: 20110912
  Transmission Date: 20111222
  Serious: Yes (Other)
  Sender: FDA-Public Use
  Company Number: GB-ABBOTT-11P-167-0844539-00

PATIENT
  Weight: 101 kg

DRUGS (1)
  1. HUMIRA [Suspect]
     Indication: PSORIASIS
     Route: 058
     Dates: start: 20090728, end: 20100726

REACTIONS (3)
  - DRUG EFFECT DECREASED [None]
  - PSORIASIS [None]
  - UNEVALUABLE EVENT [None]
